FAERS Safety Report 5188255-X (Version None)
Quarter: 2006Q4

REPORT INFORMATION
  Report Type: 
  Country: None (occurrence: None)
  Receive Date: 20061221
  Receipt Date: 20051222
  Transmission Date: 20070319
  Serious: Yes (Hospitalization)
  Sender: FDA-Public Use
  Company Number: JP-JPN-A20053177

PATIENT
  Age: 81 Year
  Sex: Male
  Weight: 43 kg

DRUGS (5)
  1. VALTREX [Suspect]
     Indication: HERPES ZOSTER
     Dosage: 1000MG THREE TIMES PER DAY
     Route: 048
     Dates: start: 20051216, end: 20051219
  2. ASPIRIN [Concomitant]
     Dosage: 100MG PER DAY
     Route: 048
  3. BLOPRESS [Concomitant]
     Dosage: 8MG PER DAY
     Route: 048
  4. KALIMATE [Concomitant]
     Route: 048
  5. CARDENALIN [Concomitant]
     Dosage: 1MG PER DAY
     Route: 048

REACTIONS (6)
  - AGITATION [None]
  - CREATININE RENAL CLEARANCE DECREASED [None]
  - HALLUCINATION, AUDITORY [None]
  - HALLUCINATION, VISUAL [None]
  - INSOMNIA [None]
  - SOLILOQUY [None]
